FAERS Safety Report 19489466 (Version 2)
Quarter: 2023Q2

REPORT INFORMATION
  Report Type: Spontaneous
  Country: US (occurrence: US)
  Receive Date: 20210703
  Receipt Date: 20230428
  Transmission Date: 20230721
  Serious: Yes (Other)
  Sender: FDA-Public Use
  Company Number: US-TEVA-2021-US-1927882

PATIENT
  Age: 46 Year
  Sex: Male

DRUGS (9)
  1. LOSARTAN [Suspect]
     Active Substance: LOSARTAN
     Indication: Hypertension
     Route: 065
     Dates: start: 20160112, end: 20160329
  2. LOSARTAN [Suspect]
     Active Substance: LOSARTAN
     Route: 065
     Dates: start: 20160330, end: 20160330
  3. LOSARTAN [Suspect]
     Active Substance: LOSARTAN
     Route: 065
     Dates: start: 20160401, end: 20160619
  4. LOSARTAN [Suspect]
     Active Substance: LOSARTAN
     Route: 065
     Dates: start: 20160620, end: 20161015
  5. LOSARTAN [Suspect]
     Active Substance: LOSARTAN
     Route: 065
     Dates: start: 20161016, end: 20170117
  6. LOSARTAN [Suspect]
     Active Substance: LOSARTAN
     Route: 065
     Dates: start: 20170118, end: 20170416
  7. LOSARTAN [Suspect]
     Active Substance: LOSARTAN
     Route: 065
     Dates: start: 20170417, end: 20170713
  8. LOSARTAN [Suspect]
     Active Substance: LOSARTAN
     Route: 065
     Dates: start: 20170714, end: 2017
  9. LOSARTAN [Suspect]
     Active Substance: LOSARTAN
     Route: 065
     Dates: start: 20180818, end: 2018

REACTIONS (1)
  - Rectal cancer [Unknown]
